FAERS Safety Report 12736150 (Version 5)
Quarter: 2021Q2

REPORT INFORMATION
  Report Type: Other
  Country: CA (occurrence: CA)
  Receive Date: 20160913
  Receipt Date: 20210421
  Transmission Date: 20210716
  Serious: Yes (Other)
  Sender: FDA-Public Use
  Company Number: CA-ROCHE-1827989

PATIENT
  Age: 54 Year
  Sex: Male

DRUGS (5)
  1. XOLAIR [Suspect]
     Active Substance: OMALIZUMAB
     Route: 058
     Dates: start: 20190304
  2. SYMBICORT [Concomitant]
     Active Substance: BUDESONIDE\FORMOTEROL FUMARATE DIHYDRATE
     Dosage: UP TO 8 TIMES
  3. XOLAIR [Suspect]
     Active Substance: OMALIZUMAB
     Indication: ASTHMA
     Dosage: 300 MG, BIW
     Route: 058
     Dates: start: 20150706
  4. XOLAIR [Suspect]
     Active Substance: OMALIZUMAB
     Route: 058
     Dates: start: 20180514
  5. CORTISONE [Concomitant]
     Active Substance: CORTISONE

REACTIONS (12)
  - Heart rate increased [Unknown]
  - Dyspnoea exertional [Unknown]
  - Wheezing [Unknown]
  - Hypersensitivity [Unknown]
  - Respiratory tract congestion [Unknown]
  - Electrocardiogram ST segment depression [Unknown]
  - Blood pressure increased [Unknown]
  - Neck pain [Unknown]
  - Fatigue [Unknown]
  - Ventricular extrasystoles [Unknown]
  - Obstructive airways disorder [Unknown]
  - Extrasystoles [Unknown]

NARRATIVE: CASE EVENT DATE: 20190312
